FAERS Safety Report 9253853 (Version 1)
Quarter: 2013Q2

REPORT INFORMATION
  Report Type: Spontaneous
  Country: FR (occurrence: FR)
  Receive Date: 20130425
  Receipt Date: 20130425
  Transmission Date: 20140414
  Serious: Yes (Hospitalization)
  Sender: FDA-Public Use
  Company Number: FR-SANOFI-AVENTIS-2013SA040528

PATIENT
  Age: 85 Year
  Sex: Female

DRUGS (4)
  1. LASILIX FABILE [Suspect]
     Indication: CARDIAC FAILURE
     Dosage: STRENGTH: 20 MG
     Route: 048
     Dates: end: 20130403
  2. ZOMETA [Interacting]
     Indication: FRACTURE
     Route: 042
     Dates: start: 201212, end: 20130328
  3. HEMIGOXINE NATIVELLE [Suspect]
     Indication: CARDIAC FAILURE
     Dosage: STRENGTH: 0.125 MG
     Route: 048
  4. XARELTO [Concomitant]

REACTIONS (3)
  - Coma [Recovered/Resolved]
  - Drug interaction [Unknown]
  - Hypokalaemia [Recovered/Resolved]
